FAERS Safety Report 16394053 (Version 3)
Quarter: 2019Q3

REPORT INFORMATION
  Report Type: Spontaneous
  Country: AU (occurrence: AU)
  Receive Date: 20190605
  Receipt Date: 20190703
  Transmission Date: 20191004
  Serious: Yes (Other)
  Sender: FDA-Public Use
  Company Number: AU-JNJFOC-20190541818

PATIENT
  Age: 27 Year
  Sex: Female

DRUGS (4)
  1. CLADRIBINE. [Suspect]
     Active Substance: CLADRIBINE
     Indication: MULTIPLE SCLEROSIS
     Dosage: 2 TABLET 20 MG A DAY ON DAYS 1 TO 3 FOLLOWED BY 1 TABLET 10 MG A DAY ON DAYS 4 AND 5
     Route: 048
     Dates: start: 20180627, end: 20180701
  2. TOPAMAX [Suspect]
     Active Substance: TOPIRAMATE
     Indication: MIGRAINE
     Route: 048
  3. CLADRIBINE. [Suspect]
     Active Substance: CLADRIBINE
     Route: 048
     Dates: start: 20180724, end: 20180728
  4. MAGNESIUM FORTE [Concomitant]
     Indication: BODY TEMPERATURE DECREASED

REACTIONS (2)
  - Memory impairment [Unknown]
  - Optic nerve injury [Recovered/Resolved]
